FAERS Safety Report 5491939-7 (Version None)
Quarter: 2007Q4

REPORT INFORMATION
  Report Type: 
  Country: None (occurrence: None)
  Receive Date: 20071022
  Receipt Date: 20071012
  Transmission Date: 20080405
  Serious: No
  Sender: FDA-Public Use
  Company Number: US-JNJFOC-20071003865

PATIENT
  Age: 4 Decade
  Sex: Male

DRUGS (3)
  1. INVEGA [Suspect]
     Route: 048
  2. INVEGA [Suspect]
     Indication: SCHIZOPHRENIA
     Route: 048
  3. DEPAKOTE [Concomitant]
     Indication: SCHIZOPHRENIA

REACTIONS (1)
  - URINARY INCONTINENCE [None]
